FAERS Safety Report 14427017 (Version 1)
Quarter: 2018Q1

REPORT INFORMATION
  Report Type: Spontaneous
  Country: US (occurrence: US)
  Receive Date: 20180123
  Receipt Date: 20180123
  Transmission Date: 20180509
  Serious: Yes (Other)
  Sender: FDA-Public Use
  Company Number: US-ELI_LILLY_AND_COMPANY-US201801005656

PATIENT
  Sex: Male

DRUGS (3)
  1. HUMALOG [Suspect]
     Active Substance: INSULIN LISPRO
     Indication: TYPE 1 DIABETES MELLITUS
     Dosage: UNK, PRN
     Dates: start: 1980
  2. LANTUS [Concomitant]
     Active Substance: INSULIN GLARGINE
     Indication: TYPE 1 DIABETES MELLITUS
     Dosage: UNK, PRN
  3. HUMALOG [Suspect]
     Active Substance: INSULIN LISPRO
     Dosage: UNK, PRN
     Dates: start: 1980

REACTIONS (4)
  - Drug dose omission [Not Recovered/Not Resolved]
  - Hypoacusis [Not Recovered/Not Resolved]
  - Prostate cancer [Not Recovered/Not Resolved]
  - Blood glucose increased [Unknown]

NARRATIVE: CASE EVENT DATE: 2000
